FAERS Safety Report 10174207 (Version 1)
Quarter: 2014Q2

REPORT INFORMATION
  Report Type: Spontaneous
  Country: US (occurrence: US)
  Receive Date: 20140515
  Receipt Date: 20140515
  Transmission Date: 20141212
  Serious: Yes (Hospitalization, Other)
  Sender: FDA-Public Use
  Company Number: US-ACTAVIS-2014-10058

PATIENT
  Age: 64 Year
  Sex: Male

DRUGS (8)
  1. CYCLOPHOSPHAMIDE (UNKNOWN) [Suspect]
     Indication: PRECURSOR B-LYMPHOBLASTIC LYMPHOMA
     Dosage: UNKNOWN
     Route: 065
  2. VINCRISTINE (UNKNOWN) [Suspect]
     Indication: PRECURSOR B-LYMPHOBLASTIC LYMPHOMA
     Dosage: UNKNOWN
     Route: 065
  3. DOXORUBICIN (UNKNOWN) [Suspect]
     Indication: PRECURSOR B-LYMPHOBLASTIC LYMPHOMA
     Dosage: UNKNOWN
     Route: 065
  4. DEXAMETHASONE (WATSON LABORATORIES) [Suspect]
     Indication: PRECURSOR B-LYMPHOBLASTIC LYMPHOMA
     Dosage: UNKNOWN
     Route: 065
  5. METHOTREXATE (UNKNOWN) [Suspect]
     Indication: PROPHYLAXIS
     Dosage: UNKNOWN
     Route: 039
  6. CYCLOSPORINE (WATSON LABORATORIES) [Suspect]
     Indication: ACUTE MYELOID LEUKAEMIA
     Dosage: UNKNOWN
     Route: 065
     Dates: start: 201109
  7. CYTARABINE [Suspect]
     Indication: PRECURSOR B-LYMPHOBLASTIC LYMPHOMA
     Dosage: UNKNOWN
     Route: 065
     Dates: start: 201109
  8. DAUNORUBICIN [Suspect]
     Indication: ACUTE MYELOID LEUKAEMIA
     Dosage: UNKNOWN
     Route: 065
     Dates: start: 201109

REACTIONS (6)
  - Bacterial sepsis [Unknown]
  - Febrile neutropenia [Unknown]
  - Clostridium difficile colitis [Unknown]
  - Adrenal insufficiency [Unknown]
  - Fatigue [Unknown]
  - Dehydration [Unknown]
